FAERS Safety Report 6153801-6 (Version None)
Quarter: 2009Q2

REPORT INFORMATION
  Report Type: 
  Country: None (occurrence: None)
  Receive Date: 20090414
  Receipt Date: 20080104
  Transmission Date: 20091009
  Serious: Yes (Death, Hospitalization, Other)
  Sender: FDA-Public Use
  Company Number: US-ASTRAZENECA-2007UW09506

PATIENT
  Age: 74 Year
  Sex: Female
  Weight: 72.6 kg

DRUGS (39)
  1. SEROQUEL [Suspect]
     Indication: SLEEP DISORDER
     Route: 048
     Dates: start: 20020401, end: 20060212
  2. SEROQUEL [Suspect]
     Route: 048
     Dates: start: 20020227
  3. PROTONIX [Concomitant]
  4. ACTOS [Concomitant]
  5. ALTACE [Concomitant]
  6. ATROVENT [Concomitant]
  7. NORVASC [Concomitant]
  8. QUESTRAN [Concomitant]
  9. CELEXA [Concomitant]
  10. GLUCOPHAGE [Concomitant]
  11. SINGULAIR [Concomitant]
  12. COZAAR [Concomitant]
  13. SYNTHROID [Concomitant]
  14. BENICAR [Concomitant]
  15. PROZAC [Concomitant]
  16. XOPENEX [Concomitant]
  17. SOLU-MEDROL [Concomitant]
  18. ATIVAN [Concomitant]
  19. KLONOPIN [Concomitant]
  20. TENORMIN [Concomitant]
  21. AMARYL [Concomitant]
  22. XANAX [Concomitant]
  23. PHENERGAN [Concomitant]
  24. LASIX [Concomitant]
  25. MAG OX [Concomitant]
  26. PLAVIX [Concomitant]
  27. CARDIZEM [Concomitant]
  28. LITHIUM CARBONATE [Concomitant]
  29. REGLAN [Concomitant]
  30. K-DUR [Concomitant]
  31. DIAMOX [Concomitant]
  32. LOMOTIL [Concomitant]
  33. NITROL [Concomitant]
  34. COLACE [Concomitant]
  35. THEO-24 [Concomitant]
  36. ORETIC [Concomitant]
  37. MORPHINE [Concomitant]
  38. K-LYTE [Concomitant]
  39. MYLANTA [Concomitant]

REACTIONS (17)
  - ACUTE MYOCARDIAL INFARCTION [None]
  - CARDIAC FAILURE CONGESTIVE [None]
  - CHRONIC OBSTRUCTIVE PULMONARY DISEASE [None]
  - CONJUNCTIVITIS BACTERIAL [None]
  - CORONARY ARTERY DISEASE [None]
  - DEATH [None]
  - DIABETIC KETOACIDOSIS [None]
  - DIARRHOEA [None]
  - HYPONATRAEMIA [None]
  - HYPOTHYROIDISM [None]
  - OEDEMA PERIPHERAL [None]
  - PLEURAL EFFUSION [None]
  - PNEUMONIA [None]
  - RASH [None]
  - RESPIRATORY FAILURE [None]
  - RIGHT VENTRICULAR FAILURE [None]
  - TYPE 2 DIABETES MELLITUS [None]
